FAERS Safety Report 12817944 (Version 1)
Quarter: 2016Q4

REPORT INFORMATION
  Report Type: Spontaneous
  Country: US (occurrence: US)
  Receive Date: 20161006
  Receipt Date: 20161006
  Transmission Date: 20170207
  Serious: No
  Sender: FDA-Public Use
  Company Number: US-DRREDDYS-USA/USA/15/0053899

PATIENT
  Age: 46 Year
  Sex: Female
  Weight: 99.7 kg

DRUGS (2)
  1. VAGIFEM [Concomitant]
     Active Substance: ESTRADIOL
     Indication: PRODUCT USED FOR UNKNOWN INDICATION
     Route: 065
  2. SUMATRIPTAN SUCCINATE TABLETS [Suspect]
     Active Substance: SUMATRIPTAN SUCCINATE
     Indication: MIGRAINE
     Route: 048
     Dates: start: 20151103

REACTIONS (3)
  - Pain in jaw [Recovered/Resolved]
  - Chest discomfort [Recovered/Resolved]
  - Muscle tightness [Recovered/Resolved]

NARRATIVE: CASE EVENT DATE: 20151103
